FAERS Safety Report 21459920 (Version 3)
Quarter: 2022Q4

REPORT INFORMATION
  Report Type: Report from Study
  Country: ES (occurrence: ES)
  Receive Date: 20221014
  Receipt Date: 20221230
  Transmission Date: 20230112
  Serious: Yes (Hospitalization)
  Sender: FDA-Public Use
  Company Number: ES-PFIZER INC-PV202200080112

PATIENT
  Age: 57 Year
  Sex: Female
  Weight: 82 kg

DRUGS (10)
  1. EXEMESTANE [Suspect]
     Active Substance: EXEMESTANE
     Indication: Breast cancer
     Dosage: 25 MG, DAILY
     Route: 048
     Dates: start: 20190104, end: 20201223
  2. ABEMACICLIB [Suspect]
     Active Substance: ABEMACICLIB
     Indication: Breast cancer
     Dosage: UNK
  3. TRIPTORELIN ACETATE [Suspect]
     Active Substance: TRIPTORELIN ACETATE
     Indication: Breast cancer
     Dosage: 3.75 MG, INJECTION, EVERY FOUR WEEKS
     Dates: start: 20190104, end: 20200526
  4. EXEMESTANE [Concomitant]
     Active Substance: EXEMESTANE
     Dosage: POST-DISCONTINUATION TREATMENT
     Dates: start: 20201224, end: 20210203
  5. LETROZOLE [Concomitant]
     Active Substance: LETROZOLE
     Dosage: POST-TREATMENT
     Dates: start: 20210225
  6. ALPRAZOLAM [Concomitant]
     Active Substance: ALPRAZOLAM
     Dosage: UNK
  7. SERELYS [Concomitant]
     Indication: Hot flush
     Dosage: UNK
     Dates: start: 20190104
  8. CALCIFEDIOL [Concomitant]
     Active Substance: CALCIFEDIOL
     Dosage: UNK
     Dates: start: 20190104
  9. OMEPRAZOLE [Concomitant]
     Active Substance: OMEPRAZOLE
     Indication: Prophylaxis
     Dosage: UNK
     Dates: start: 20190104
  10. FLUOXETINE [Concomitant]
     Active Substance: FLUOXETINE HYDROCHLORIDE
     Indication: Depression
     Dosage: UNK
     Dates: start: 20190302

REACTIONS (1)
  - Pneumonia [Recovered/Resolved]

NARRATIVE: CASE EVENT DATE: 20220904
